FAERS Safety Report 8766681 (Version 4)
Quarter: 2013Q1

REPORT INFORMATION
  Report Type: Report from Study
  Country: US (occurrence: US)
  Receive Date: 20120904
  Receipt Date: 20130125
  Transmission Date: 20140127
  Serious: Yes (Death, Hospitalization)
  Sender: FDA-Public Use
  Company Number: US-JNJFOC-20120814975

PATIENT
  Age: 22 Year
  Sex: Female
  Weight: 27 kg

DRUGS (6)
  1. CISAPRIDE [Suspect]
     Indication: IMPAIRED GASTRIC EMPTYING
     Route: 050
     Dates: start: 20120822
  2. CISAPRIDE [Suspect]
     Indication: IMPAIRED GASTRIC EMPTYING
     Route: 050
     Dates: start: 20080228, end: 20120821
  3. CISAPRIDE [Suspect]
     Indication: GASTROOESOPHAGEAL REFLUX DISEASE
     Route: 050
     Dates: start: 20120822
  4. CISAPRIDE [Suspect]
     Indication: GASTROOESOPHAGEAL REFLUX DISEASE
     Route: 050
     Dates: start: 20080228, end: 20120821
  5. NEXIUM [Concomitant]
     Indication: GASTROOESOPHAGEAL REFLUX DISEASE
     Route: 065
     Dates: start: 20100402
  6. VALIUM [Concomitant]
     Indication: MUSCLE SPASTICITY
     Route: 065
     Dates: start: 20100407

REACTIONS (1)
  - Respiratory failure [Fatal]
